FAERS Safety Report 7283402-8 (Version None)
Quarter: 2011Q1

REPORT INFORMATION
  Report Type: 
  Country: None (occurrence: None)
  Receive Date: 20110209
  Receipt Date: 20100917
  Transmission Date: 20110831
  Serious: No
  Sender: FDA-Public Use
  Company Number: A0881696A

PATIENT
  Age: 69 Year
  Sex: Female

DRUGS (4)
  1. LISINOPRIL [Concomitant]
  2. PAROXETINE HCL [Suspect]
     Dosage: 20MG PER DAY
     Route: 048
     Dates: start: 20100601
  3. SIMVASTATIN [Concomitant]
  4. TRIAMTERENE [Concomitant]

REACTIONS (1)
  - ALOPECIA [None]
